FAERS Safety Report 6528497-1 (Version None)
Quarter: 2010Q1

REPORT INFORMATION
  Report Type: 
  Country: None (occurrence: None)
  Receive Date: 20100106
  Receipt Date: 20091228
  Transmission Date: 20100710
  Serious: Yes (Other)
  Sender: FDA-Public Use
  Company Number: BR-PFIZER INC-2009282828

PATIENT
  Age: 58 Year
  Sex: Male
  Weight: 84 kg

DRUGS (1)
  1. CARDURAN XL [Suspect]
     Indication: PROSTATIC OBSTRUCTION
     Dosage: 4 MG, 1X/DAY
     Route: 048
     Dates: start: 20090521

REACTIONS (7)
  - DYSPAREUNIA [None]
  - ERYSIPELAS [None]
  - ERYTHEMA [None]
  - PENIS DISORDER [None]
  - PENIS INJURY [None]
  - PRURITUS [None]
  - WOUND [None]
